FAERS Safety Report 10021728 (Version 1)
Quarter: 2014Q1

REPORT INFORMATION
  Report Type: Spontaneous
  Country: US (occurrence: None)
  Receive Date: 20140318
  Receipt Date: 20140318
  Transmission Date: 20141002
  Serious: Yes (Other)
  Sender: FDA-Public Use
  Company Number: None

PATIENT
  Age: 72 Year
  Sex: Female

DRUGS (3)
  1. GAZYVA [Suspect]
     Indication: CHRONIC LYMPHOCYTIC LEUKAEMIA
     Dosage: 4 HR AND 39 MIN INFUSION??100 MG CIDI INFUSION INTRAVENOUS
     Route: 042
  2. GAZYVA [Suspect]
     Indication: CHEMOTHERAPY
     Dosage: 4 HR AND 39 MIN INFUSION??100 MG CIDI INFUSION INTRAVENOUS
     Route: 042
  3. CHLORAMBUCAL [Concomitant]

REACTIONS (5)
  - Chills [None]
  - Nausea [None]
  - Heart rate increased [None]
  - Blood pressure increased [None]
  - Infusion related reaction [None]
